FAERS Safety Report 13333945 (Version 1)
Quarter: 2017Q1

REPORT INFORMATION
  Report Type: Spontaneous
  Country: US (occurrence: US)
  Receive Date: 20170314
  Receipt Date: 20170314
  Transmission Date: 20170428
  Serious: Yes (Other)
  Sender: FDA-Public Use
  Company Number: US-TEVA-694578USA

PATIENT
  Age: 73 Year
  Sex: Female
  Weight: 64.01 kg

DRUGS (19)
  1. PLAVIX [Concomitant]
     Active Substance: CLOPIDOGREL BISULFATE
     Dosage: 1 TAB AT SUPPER
  2. LOTENSIN [Concomitant]
     Active Substance: BENAZEPRIL HYDROCHLORIDE
  3. LIPITOR [Concomitant]
     Active Substance: ATORVASTATIN CALCIUM
     Dosage: AT BED TIME
  4. SINGULAIR [Concomitant]
     Active Substance: MONTELUKAST SODIUM
     Indication: ASTHMA
  5. NORVASC [Concomitant]
     Active Substance: AMLODIPINE BESYLATE
     Dosage: 1 TAB EACH PM
  6. NEURONTIN [Concomitant]
     Active Substance: GABAPENTIN
     Dosage: IN PM
  7. PROAIR HFA [Concomitant]
     Active Substance: ALBUTEROL SULFATE
     Indication: ASTHMA
  8. IBUPROFEN. [Concomitant]
     Active Substance: IBUPROFEN
     Dosage: 1 TAB EVERY 6 HRS IF NEEDED
  9. SULINDAC. [Suspect]
     Active Substance: SULINDAC
     Indication: OSTEOARTHRITIS
     Dosage: 300 MILLIGRAM DAILY;
     Dates: end: 20160810
  10. METHYLDOPA. [Concomitant]
     Active Substance: METHYLDOPA
  11. QVAR [Concomitant]
     Active Substance: BECLOMETHASONE DIPROPIONATE
     Indication: ASTHMA
     Dosage: 1 OR 2 PUFFS DAILY EVERY 12 HOURS
  12. NEURONTIN [Concomitant]
     Active Substance: GABAPENTIN
     Dosage: IN AM
  13. PROAIR HFA [Concomitant]
     Active Substance: ALBUTEROL SULFATE
     Indication: COUGH
     Dosage: 2 PUFFS EVERY 4?6 HRS
  14. LASIX [Concomitant]
     Active Substance: FUROSEMIDE
     Dosage: MONDAY, WED AND FRI. AM
  15. DESYREL [Concomitant]
     Active Substance: TRAZODONE HYDROCHLORIDE
     Dosage: AT BED TIME
  16. XANAX [Concomitant]
     Active Substance: ALPRAZOLAM
     Dosage: 1 AT BED TIME OR 3X A DAY AS NEEDED
  17. ALLEGRA PEDIATRIC [Concomitant]
     Indication: ALLERGIC SINUSITIS
     Dosage: EVERY 12 HOURS AS NEEDED
  18. PROAIR HFA [Concomitant]
     Active Substance: ALBUTEROL SULFATE
     Indication: WHEEZING
  19. PRILOSEC [Concomitant]
     Active Substance: OMEPRAZOLE MAGNESIUM
     Dosage: 1 CAP EACH AM 30-40 MINUTES BEFORE BREAKFAST

REACTIONS (4)
  - Adverse event [Not Recovered/Not Resolved]
  - Oral pruritus [Recovered/Resolved]
  - Throat tightness [Recovered/Resolved]
  - Pruritus [Not Recovered/Not Resolved]

NARRATIVE: CASE EVENT DATE: 20160810
